FAERS Safety Report 7091464-6 (Version None)
Quarter: 2010Q4

REPORT INFORMATION
  Report Type: 
  Country: None (occurrence: None)
  Receive Date: 20101105
  Receipt Date: 20101105
  Transmission Date: 20110411
  Serious: Yes (Other)
  Sender: FDA-Public Use
  Company Number: None

PATIENT
  Age: 74 Year
  Sex: Male
  Weight: 65.318 kg

DRUGS (1)
  1. RESTASIS [Suspect]
     Indication: DRY EYE
     Dosage: ONE DROP IN EACH EYE TWICE DAILY OPTHALMIC
     Route: 047
     Dates: start: 20101022, end: 20101030

REACTIONS (4)
  - EYELID DISORDER [None]
  - FOREIGN BODY IN EYE [None]
  - PHOTOPHOBIA [None]
  - VISION BLURRED [None]
